FAERS Safety Report 14767105 (Version 4)
Quarter: 2018Q2

REPORT INFORMATION
  Report Type: Spontaneous
  Country: CO (occurrence: CO)
  Receive Date: 20180417
  Receipt Date: 20180614
  Transmission Date: 20180711
  Serious: Yes (Life-Threatening, Hospitalization, Other)
  Sender: FDA-Public Use
  Company Number: CO-B.I. PHARMACEUTICALS,INC./RIDGEFIELD-2018-BI-020727

PATIENT
  Age: 45 Year
  Sex: Male

DRUGS (4)
  1. JARDIANCE [Suspect]
     Active Substance: EMPAGLIFLOZIN
     Indication: TYPE 2 DIABETES MELLITUS
     Route: 048
  2. METFORMINA [Concomitant]
     Active Substance: METFORMIN HYDROCHLORIDE
     Indication: TYPE 2 DIABETES MELLITUS
     Route: 065
  3. INSULINA GLARGINA [Concomitant]
     Indication: TYPE 2 DIABETES MELLITUS
     Route: 065
  4. INSULINA GLULISINA [Concomitant]
     Indication: TYPE 2 DIABETES MELLITUS
     Dosage: WITH MEALS
     Route: 065

REACTIONS (4)
  - Abdominal pain [Unknown]
  - Tachypnoea [Unknown]
  - Vomiting [Unknown]
  - Euglycaemic diabetic ketoacidosis [Recovered/Resolved]
